FAERS Safety Report 16902541 (Version 2)
Quarter: 2019Q4

REPORT INFORMATION
  Report Type: Spontaneous
  Country: FR (occurrence: FR)
  Receive Date: 20191010
  Receipt Date: 20191029
  Transmission Date: 20200122
  Serious: Yes (Death, Life-Threatening)
  Sender: FDA-Public Use
  Company Number: FR-PFIZER INC-2019435184

PATIENT
  Age: 54 Year
  Sex: Female
  Weight: 46 kg

DRUGS (5)
  1. ZOLPIDEM [Suspect]
     Active Substance: ZOLPIDEM TARTRATE
     Dosage: 100 MG, SINGLE (10 TABLETS OF 10 MG IN A SINGLE DOSE)
     Route: 048
     Dates: start: 20190809
  2. MIANSERINE [MIANSERIN HYDROCHLORIDE] [Suspect]
     Active Substance: MIANSERIN HYDROCHLORIDE
     Dosage: 180 MG, SINGLE (3 TABLETS OF 60 MG IN A SINGLE DOSE)
     Route: 048
     Dates: start: 20190809
  3. DESLORATADINE. [Suspect]
     Active Substance: DESLORATADINE
     Dosage: 65 MG, SINGLE (13 TABLETS OF 5 MG IN A SINGLE DOSE)
     Route: 048
     Dates: start: 20190809
  4. GABAPENTIN. [Suspect]
     Active Substance: GABAPENTIN
     Dosage: 6000 MG, SINGLE (20 CAPSULES OF 300MG IN A SINGLE DOSE)
     Route: 048
     Dates: start: 20180809
  5. DIFFU K [Suspect]
     Active Substance: POTASSIUM CHLORIDE
     Dosage: 7800 MG, SINGLE (13 CAPSULES OF 600 MG IN A SINGLE DOSE)
     Route: 048
     Dates: start: 20190809

REACTIONS (7)
  - Disseminated intravascular coagulation [Fatal]
  - Arrhythmia [Fatal]
  - Intentional overdose [Fatal]
  - Cardio-respiratory arrest [Fatal]
  - Hyperkalaemia [Fatal]
  - Respiratory disorder [Fatal]
  - Toxicity to various agents [Fatal]

NARRATIVE: CASE EVENT DATE: 20190809
